FAERS Safety Report 19534141 (Version 1)
Quarter: 2021Q3

REPORT INFORMATION
  Report Type: Spontaneous
  Country: IR (occurrence: IR)
  Receive Date: 20210714
  Receipt Date: 20210714
  Transmission Date: 20211014
  Serious: Yes (Hospitalization, Other)
  Sender: FDA-Public Use
  Company Number: IR-LUPIN PHARMACEUTICALS INC.-2021-11754

PATIENT
  Age: 26 Year
  Sex: Female

DRUGS (4)
  1. BETAMETHASONE. [Suspect]
     Active Substance: BETAMETHASONE
     Indication: ANALGESIC THERAPY
     Dosage: UNK
     Route: 061
  2. CHLORHEXIDINE [Concomitant]
     Active Substance: CHLORHEXIDINE
     Indication: ACANTHAMOEBA KERATITIS
     Dosage: 0.02 PERCENT EVERY 30 MINUTES FOR FIRST DAY
     Route: 061
  3. CHLORHEXIDINE [Concomitant]
     Active Substance: CHLORHEXIDINE
     Dosage: UNK (EVERY 30 MINUTES FOR THE FIRST DAY, AND THEN CONTINUED IN A TAPERING MODE)
     Route: 061
  4. POLYHEXAMETHYLENE BIGUANIDE HYDROCHLORIDE [Concomitant]
     Active Substance: POLIHEXANIDE HYDROCHLORIDE
     Indication: ACANTHAMOEBA KERATITIS
     Dosage: 0.02 PERCENT
     Route: 061

REACTIONS (4)
  - Condition aggravated [Recovering/Resolving]
  - Intentional product misuse [Recovering/Resolving]
  - Acanthamoeba keratitis [Recovering/Resolving]
  - Endophthalmitis [Recovering/Resolving]
